FAERS Safety Report 17879698 (Version 2)
Quarter: 2020Q3

REPORT INFORMATION
  Report Type: Spontaneous
  Country: US (occurrence: US)
  Receive Date: 20200610
  Receipt Date: 20200826
  Transmission Date: 20201103
  Serious: No
  Sender: FDA-Public Use
  Company Number: NVSC2020US161407

PATIENT
  Sex: Female

DRUGS (2)
  1. ZOFRAN [Suspect]
     Active Substance: ONDANSETRON HYDROCHLORIDE
     Indication: MORNING SICKNESS
     Dosage: 08 MG, BID
     Route: 048
     Dates: start: 200212, end: 200304
  2. ZOFRAN [Suspect]
     Active Substance: ONDANSETRON HYDROCHLORIDE
     Indication: MORNING SICKNESS
     Dosage: 02 MG, PRN
     Route: 042
     Dates: start: 200212, end: 200304

REACTIONS (3)
  - Product use in unapproved indication [Unknown]
  - Injury [Unknown]
  - Maternal exposure during pregnancy [Unknown]
